FAERS Safety Report 7010925-9 (Version None)
Quarter: 2010Q3

REPORT INFORMATION
  Report Type: 
  Country: None (occurrence: None)
  Receive Date: 20100923
  Receipt Date: 20100923
  Transmission Date: 20110219
  Serious: No
  Sender: FDA-Public Use
  Company Number: None

PATIENT
  Age: 9 Year
  Sex: Female
  Weight: 51.7101 kg

DRUGS (2)
  1. SINGULAIR [Suspect]
     Indication: ASTHMA
     Dosage: 5MG  X1 DAY
     Dates: start: 20100920, end: 20100921
  2. SINGULAIR [Suspect]
     Indication: SEASONAL ALLERGY
     Dosage: 5MG  X1 DAY
     Dates: start: 20100920, end: 20100921

REACTIONS (3)
  - ABDOMINAL PAIN UPPER [None]
  - ABNORMAL DREAMS [None]
  - HALLUCINATION [None]
